FAERS Safety Report 24605757 (Version 2)
Quarter: 2025Q1

REPORT INFORMATION
  Report Type: Spontaneous
  Country: IT (occurrence: IT)
  Receive Date: 20241111
  Receipt Date: 20250129
  Transmission Date: 20250408
  Serious: Yes (Other)
  Sender: JOHNSON AND JOHNSON
  Company Number: IT-JNJFOC-20241124719

PATIENT
  Age: 38 Year
  Sex: Male
  Weight: 80 kg

DRUGS (2)
  1. EDURANT [Suspect]
     Active Substance: RILPIVIRINE HYDROCHLORIDE
     Indication: Product used for unknown indication
     Route: 048
     Dates: start: 20240921, end: 20241118
  2. VOCABRIA [Suspect]
     Active Substance: CABOTEGRAVIR SODIUM
     Indication: Product used for unknown indication
     Dosage: 1 TABLET PER DAY
     Route: 065
     Dates: start: 20240921, end: 20241118

REACTIONS (3)
  - Syphilis [Unknown]
  - Alanine aminotransferase increased [Not Recovered/Not Resolved]
  - Aspartate aminotransferase increased [Not Recovered/Not Resolved]

NARRATIVE: CASE EVENT DATE: 20241001
